FAERS Safety Report 17162130 (Version 1)
Quarter: 2019Q4

REPORT INFORMATION
  Report Type: Spontaneous
  Country: US (occurrence: US)
  Receive Date: 20191217
  Receipt Date: 20191217
  Transmission Date: 20200122
  Serious: Yes (Other)
  Sender: FDA-Public Use
  Company Number: US-AMGEN-USASP2019206754

PATIENT
  Sex: Female
  Weight: 45.35 kg

DRUGS (2)
  1. PROLIA [Suspect]
     Active Substance: DENOSUMAB
     Indication: OSTEOPOROSIS POSTMENOPAUSAL
     Dosage: UNK
     Route: 065
  2. COLLAGEN HYDROLYSATE [Concomitant]
     Dosage: UNK

REACTIONS (8)
  - Noninfective gingivitis [Unknown]
  - Gait disturbance [Unknown]
  - Mean platelet volume increased [Unknown]
  - Arthritis infective [Unknown]
  - Pain in extremity [Unknown]
  - Rash papular [Unknown]
  - Gastrooesophageal reflux disease [Unknown]
  - Arthralgia [Unknown]

NARRATIVE: CASE EVENT DATE: 201909
